FAERS Safety Report 25621275 (Version 1)
Quarter: 2025Q3

REPORT INFORMATION
  Report Type: Spontaneous
  Country: EU (occurrence: EU)
  Receive Date: 20250730
  Receipt Date: 20250730
  Transmission Date: 20251020
  Serious: Yes (Other)
  Sender: AZURITY PHARMACEUTICALS
  Company Number: EU-AZURITY PHARMACEUTICALS, INC.-AZR202507-002184

PATIENT
  Sex: Female
  Weight: 2.17 kg

DRUGS (1)
  1. DEXMEDETOMIDINE HYDROCHLORIDE [Suspect]
     Active Substance: DEXMEDETOMIDINE HYDROCHLORIDE
     Indication: Product used for unknown indication

REACTIONS (14)
  - Infant irritability [Recovered/Resolved]
  - Hyporesponsive to stimuli [Recovered/Resolved]
  - Hypotonia neonatal [Recovered/Resolved]
  - Heart rate variability decreased [Recovered/Resolved]
  - Hypocapnia [Recovered/Resolved]
  - Blood lactic acid increased [Recovered/Resolved]
  - Electroencephalogram abnormal [Recovered/Resolved]
  - Neonatal hyperglycaemia [Recovered/Resolved]
  - Infantile apnoea [Recovered/Resolved]
  - Neonatal respiratory distress [Recovered/Resolved]
  - Accidental overdose [Recovered/Resolved]
  - Product appearance confusion [Unknown]
  - Wrong product administered [Unknown]
  - Product use issue [Unknown]
